FAERS Safety Report 12340215 (Version 1)
Quarter: 2016Q2

REPORT INFORMATION
  Report Type: Spontaneous
  Country: US (occurrence: None)
  Receive Date: 20160505
  Receipt Date: 20160505
  Transmission Date: 20160815
  Serious: Yes (Disabling)
  Sender: FDA-Public Use
  Company Number: None

PATIENT
  Age: 41 Year
  Sex: Female
  Weight: 54.43 kg

DRUGS (3)
  1. OMEGA 3^S [Concomitant]
  2. MIRENA [Suspect]
     Active Substance: LEVONORGESTREL
     Dates: start: 20151110, end: 20160210
  3. LORATINE [Concomitant]

REACTIONS (15)
  - Dizziness [None]
  - Depressed level of consciousness [None]
  - Visual impairment [None]
  - Affective disorder [None]
  - Fatigue [None]
  - Derealisation [None]
  - Tinnitus [None]
  - Panic attack [None]
  - Migraine [None]
  - Weight increased [None]
  - Hypoglycaemia [None]
  - Arthritis [None]
  - Muscle spasms [None]
  - Head discomfort [None]
  - Dysphagia [None]

NARRATIVE: CASE EVENT DATE: 20160113
